FAERS Safety Report 23289259 (Version 1)
Quarter: 2023Q4

REPORT INFORMATION
  Report Type: Report from Study
  Country: SG (occurrence: SG)
  Receive Date: 20231212
  Receipt Date: 20231212
  Transmission Date: 20240110
  Serious: Yes (Death, Other)
  Sender: FDA-Public Use
  Company Number: SG-JNJFOC-20231225070

PATIENT

DRUGS (5)
  1. DARZALEX [Suspect]
     Active Substance: DARATUMUMAB
     Indication: Plasma cell myeloma
     Route: 042
  2. DARZALEX [Suspect]
     Active Substance: DARATUMUMAB
     Route: 042
  3. DARZALEX [Suspect]
     Active Substance: DARATUMUMAB
     Route: 042
  4. VELCADE [Suspect]
     Active Substance: BORTEZOMIB
     Indication: Plasma cell myeloma
     Route: 058
  5. DEXAMETHASONE [Suspect]
     Active Substance: DEXAMETHASONE
     Indication: Plasma cell myeloma
     Dosage: 20MG FOR PATIENTS }75 YEARS
     Route: 065

REACTIONS (19)
  - Infection [Fatal]
  - Pneumonia [Unknown]
  - Neutropenia [Unknown]
  - Thrombocytopenia [Unknown]
  - Anaemia [Unknown]
  - Neuropathy peripheral [Unknown]
  - Hypokalaemia [Unknown]
  - Gastrointestinal disorder [Unknown]
  - Infusion related reaction [Unknown]
  - COVID-19 [Unknown]
  - Diarrhoea [Unknown]
  - Vomiting [Unknown]
  - Nervous system disorder [Unknown]
  - Hyponatraemia [Unknown]
  - Laboratory test abnormal [Unknown]
  - Liver function test abnormal [Unknown]
  - Hyperglycaemia [Unknown]
  - Hypocalcaemia [Unknown]
  - Constipation [Unknown]
